FAERS Safety Report 8208045-0 (Version None)
Quarter: 2012Q1

REPORT INFORMATION
  Report Type: 
  Country: None (occurrence: None)
  Receive Date: 20120314
  Receipt Date: 20120309
  Transmission Date: 20120608
  Serious: Yes (Other)
  Sender: FDA-Public Use
  Company Number: GB-ABBOTT-11P-167-0730907-00

PATIENT
  Age: 43 Year
  Sex: Male

DRUGS (19)
  1. DILTIAZEM HCL [Concomitant]
     Indication: HYPERTENSION
  2. ANTIVIRAL UNSPECIFIED [Concomitant]
     Route: 065
     Dates: start: 20070101
  3. RALTEGRAVIR [Concomitant]
     Indication: HIV INFECTION
     Dates: start: 20070101
  4. MARAVIROC [Concomitant]
     Indication: HIV INFECTION
  5. RAMIPRIL [Concomitant]
     Indication: HYPERTENSION
     Dosage: LOW DOSE
  6. BENDROFLUMETHIAZIDE [Concomitant]
     Indication: PRODUCT USED FOR UNKNOWN INDICATION
  7. IRBESARTAN [Concomitant]
     Indication: PRODUCT USED FOR UNKNOWN INDICATION
  8. ATORVASTATIN [Concomitant]
     Indication: LIPIDS INCREASED
  9. PROPRANOLOL [Concomitant]
     Indication: MIGRAINE
     Dates: start: 20080101
  10. TENOFOVIR [Concomitant]
     Indication: HIV INFECTION
     Route: 065
     Dates: start: 20070101
  11. TENOFOVIR [Concomitant]
     Route: 065
  12. EMTRICITABINE [Concomitant]
     Indication: HIV INFECTION
     Dates: start: 20070101
  13. PROPRANOLOL [Concomitant]
  14. DILTIAZEM HCL [Concomitant]
  15. PERINDOPRIL ERBUMINE [Interacting]
     Indication: HYPERTENSION
     Route: 048
     Dates: start: 20080101, end: 20080101
  16. DARUNAVIR HYDRATE [Interacting]
     Indication: HIV INFECTION
     Route: 048
     Dates: start: 20070101
  17. ANTIVIRAL UNSPECIFIED [Concomitant]
     Indication: HIV INFECTION
     Dates: start: 20070101
  18. SUMATRIPTAN [Concomitant]
     Indication: MIGRAINE
     Dosage: INTERMITTENT
     Dates: start: 20080101
  19. RITONAVIR [Suspect]
     Indication: HIV INFECTION
     Dates: start: 20070101

REACTIONS (4)
  - BLOOD CREATININE INCREASED [None]
  - DRUG LEVEL INCREASED [None]
  - RENAL IMPAIRMENT [None]
  - DRUG INTERACTION [None]
